FAERS Safety Report 13290785 (Version 2)
Quarter: 2017Q2

REPORT INFORMATION
  Report Type: Spontaneous
  Country: TW (occurrence: TW)
  Receive Date: 20170302
  Receipt Date: 20170512
  Transmission Date: 20170830
  Serious: Yes (Hospitalization)
  Sender: FDA-Public Use
  Company Number: TW-SA-2017SA032052

PATIENT
  Age: 32 Year
  Sex: Female

DRUGS (2)
  1. ISONIAZID. [Suspect]
     Active Substance: ISONIAZID
     Route: 048
     Dates: start: 20161226, end: 20170112
  2. RIFAPENTINE [Suspect]
     Active Substance: RIFAPENTINE
     Route: 048
     Dates: start: 20161226, end: 20170112

REACTIONS (5)
  - Pyrexia [Unknown]
  - Abdominal pain upper [Unknown]
  - Headache [Unknown]
  - Discomfort [Unknown]
  - Liver function test increased [Unknown]
